FAERS Safety Report 11054216 (Version 1)
Quarter: 2015Q2

REPORT INFORMATION
  Report Type: Spontaneous
  Country: FR (occurrence: FR)
  Receive Date: 20150422
  Receipt Date: 20150422
  Transmission Date: 20150821
  Serious: Yes (Death, Hospitalization)
  Sender: FDA-Public Use
  Company Number: FR-ACCORD-030230

PATIENT
  Age: 76 Year
  Sex: Male

DRUGS (8)
  1. NEFOPAM [Concomitant]
     Active Substance: NEFOPAM
  2. BIONOLYTE GLUCOSE [Concomitant]
     Dosage: 1 LITER/24 HOURS FOR HYDRATION
  3. DOCETAXEL ACCORD [Suspect]
     Active Substance: DOCETAXEL
     Indication: PROSTATE CANCER METASTATIC
     Dosage: 35 MG/KG TWICE IN MONTH AT D1 AND D15
     Route: 042
     Dates: start: 20140918, end: 20150205
  4. TRAMADOL [Concomitant]
     Active Substance: TRAMADOL
  5. KAYEXALATE [Concomitant]
     Active Substance: SODIUM POLYSTYRENE SULFONATE
  6. PARACETAMOL [Concomitant]
     Active Substance: ACETAMINOPHEN
  7. ZOPICLONE [Concomitant]
     Active Substance: ZOPICLONE
     Dosage: IF INSOMNIA
  8. MIANSERIN [Concomitant]
     Active Substance: MIANSERIN

REACTIONS (3)
  - Ileus [Fatal]
  - Septic shock [Fatal]
  - Neutropenia [Fatal]

NARRATIVE: CASE EVENT DATE: 20150209
